FAERS Safety Report 5993044-X (Version None)
Quarter: 2008Q4

REPORT INFORMATION
  Report Type: 
  Country: None (occurrence: None)
  Receive Date: 20081212
  Receipt Date: 20081210
  Transmission Date: 20090506
  Serious: Yes (Other)
  Sender: FDA-Public Use
  Company Number: FR-BRISTOL-MYERS SQUIBB COMPANY-14439723

PATIENT
  Age: 49 Year
  Sex: Male

DRUGS (3)
  1. REYATAZ [Suspect]
     Indication: HIV INFECTION
     Dates: start: 20060501, end: 20081001
  2. NORVIR [Suspect]
  3. KIVEXA [Suspect]
     Dates: start: 20060501

REACTIONS (1)
  - RENAL COLIC [None]
